FAERS Safety Report 15011153 (Version 2)
Quarter: 2018Q3

REPORT INFORMATION
  Report Type: Spontaneous
  Country: US (occurrence: US)
  Receive Date: 20180614
  Receipt Date: 20180824
  Transmission Date: 20181010
  Serious: Yes (Hospitalization)
  Sender: FDA-Public Use
  Company Number: US-JNJFOC-20180612274

PATIENT
  Age: 43 Year
  Sex: Female
  Weight: 82.1 kg

DRUGS (1)
  1. RISPERDAL CONSTA [Suspect]
     Active Substance: RISPERIDONE
     Indication: BIPOLAR DISORDER
     Dosage: STARTED IN 2011 OR PRIOR
     Route: 030

REACTIONS (2)
  - Hospitalisation [Unknown]
  - Product quality issue [Unknown]

NARRATIVE: CASE EVENT DATE: 20180515
